FAERS Safety Report 12494396 (Version 3)
Quarter: 2016Q3

REPORT INFORMATION
  Report Type: Report from Study
  Country: CA (occurrence: CA)
  Receive Date: 20160623
  Receipt Date: 20160826
  Transmission Date: 20161109
  Serious: Yes (Other)
  Sender: FDA-Public Use
  Company Number: PHHY2016CA079730

PATIENT
  Age: 75 Year
  Sex: Female

DRUGS (4)
  1. TYKERB [Suspect]
     Active Substance: LAPATINIB DITOSYLATE
     Indication: BREAST CANCER METASTATIC
     Dosage: 1250 MG, QD
     Route: 048
     Dates: start: 20160529, end: 20160613
  2. TYKERB [Suspect]
     Active Substance: LAPATINIB DITOSYLATE
     Dosage: 750 MG, QD
     Route: 048
     Dates: start: 20160622
  3. XELODA [Suspect]
     Active Substance: CAPECITABINE
     Indication: PRODUCT USED FOR UNKNOWN INDICATION
     Dosage: 3000 MG, QD
     Route: 065
     Dates: end: 20160613
  4. XELODA [Suspect]
     Active Substance: CAPECITABINE
     Dosage: 1600 MG, QD
     Route: 065
     Dates: start: 20160622

REACTIONS (7)
  - Diarrhoea [Recovering/Resolving]
  - Peripheral swelling [Recovered/Resolved]
  - Haematochezia [Unknown]
  - Weight increased [Unknown]
  - Tenderness [Recovered/Resolved]
  - Drug ineffective [Unknown]
  - Rash [Recovered/Resolved]

NARRATIVE: CASE EVENT DATE: 20160604
